FAERS Safety Report 8806024 (Version 1)
Quarter: 2012Q4

REPORT INFORMATION
  Report Type: 
  Country: US (occurrence: US)
  Receive Date: 20120925
  Receipt Date: 20120925
  Transmission Date: 20130627
  Serious: Yes (Other)
  Sender: FDA-Public Use
  Company Number: US-BAYER-2012-099459

PATIENT
  Age: 75 Year
  Sex: Male

DRUGS (16)
  1. RIVAROXABAN [Suspect]
     Indication: ATRIAL FIBRILLATION
     Dosage: 20 mg, UNK
     Dates: start: 201206
  2. RIVAROXABAN [Interacting]
     Indication: CEREBROVASCULAR ACCIDENT PROPHYLAXIS
  3. ACETYLSALICYLIC ACID({=100 MG) [Interacting]
     Dosage: 81 mg, UNK
     Route: 047
     Dates: start: 1985
  4. COZAAR [Concomitant]
     Indication: CARDIAC DISORDER
     Route: 048
     Dates: start: 2000
  5. COREG [Concomitant]
     Indication: CARDIAC DISORDER
     Dosage: 25 mg, UNK
     Route: 048
     Dates: start: 2000
  6. CRESTOR [Concomitant]
     Indication: BLOOD CHOLESTEROL INCREASED
     Dosage: 40 mg, UNK
     Route: 048
     Dates: start: 2010
  7. LANOXIN [Concomitant]
     Indication: CARDIAC DISORDER
     Dosage: .125 mg, UNK
     Route: 048
     Dates: start: 2000
  8. PROTONIX [Concomitant]
     Dosage: 40 mg, UNK
     Route: 048
     Dates: start: 1999
  9. PATANOL [Concomitant]
     Indication: MULTIPLE ALLERGIES
     Route: 031
     Dates: start: 2002
  10. NASACORT AQ [Concomitant]
     Indication: MULTIPLE ALLERGIES
     Dosage: 35 ?g, BID
     Route: 055
     Dates: start: 2007
  11. GUAIFENESIN [Concomitant]
     Route: 048
     Dates: start: 2007
  12. DONNATAL [Concomitant]
     Route: 048
     Dates: start: 2007
  13. ZYRTEC [Concomitant]
     Indication: MULTIPLE ALLERGIES
     Dosage: 10 mg, UNK
     Route: 048
     Dates: start: 2011
  14. CIALIS [Concomitant]
     Dosage: 20 mg, UNK
     Route: 048
     Dates: start: 201109
  15. XOPENEX [Concomitant]
     Dates: start: 2007
  16. SYMBICORT [Concomitant]
     Route: 055
     Dates: start: 2007

REACTIONS (2)
  - Gingival bleeding [Not Recovered/Not Resolved]
  - Product quality issue [None]
